FAERS Safety Report 17052642 (Version 1)
Quarter: 2019Q4

REPORT INFORMATION
  Report Type: Spontaneous
  Country: US (occurrence: US)
  Receive Date: 20191119
  Receipt Date: 20191119
  Transmission Date: 20200122
  Serious: Yes (Other)
  Sender: FDA-Public Use
  Company Number: None

PATIENT
  Age: 68 Year
  Sex: Female
  Weight: 54 kg

DRUGS (1)
  1. HYDROXYCHLOROQUINE TABS 200MG GENERIC [Suspect]
     Active Substance: HYDROXYCHLOROQUINE SULFATE
     Indication: SYSTEMIC LUPUS ERYTHEMATOSUS
     Dosage: ?          QUANTITY:1 TABLET(S);?
     Route: 048
     Dates: start: 20191022, end: 20191102

REACTIONS (8)
  - Pyrexia [None]
  - Feeling abnormal [None]
  - Anxiety [None]
  - Insomnia [None]
  - Depressed mood [None]
  - Dizziness [None]
  - Malaise [None]
  - Chills [None]

NARRATIVE: CASE EVENT DATE: 20191024
